FAERS Safety Report 25719882 (Version 2)
Quarter: 2025Q4

REPORT INFORMATION
  Report Type: Spontaneous
  Country: US (occurrence: None)
  Receive Date: 20250825
  Receipt Date: 20251118
  Transmission Date: 20260117
  Serious: Yes (Other)
  Sender: UCB
  Company Number: US-UCBSA-2025030730

PATIENT
  Age: 72 Year

DRUGS (1)
  1. CIMZIA [Suspect]
     Active Substance: CERTOLIZUMAB PEGOL
     Indication: Rheumatoid arthritis
     Dosage: 400 MILLIGRAM, EV 4 WEEKS

REACTIONS (5)
  - Rheumatoid arthritis [Unknown]
  - Insurance issue [Unknown]
  - Therapeutic product effect incomplete [Unknown]
  - Product prescribing issue [Unknown]
  - Product dose omission issue [Unknown]
